FAERS Safety Report 6816452-3 (Version None)
Quarter: 2010Q2

REPORT INFORMATION
  Report Type: 
  Country: None (occurrence: None)
  Receive Date: 20100630
  Receipt Date: 20100416
  Transmission Date: 20101027
  Serious: No
  Sender: FDA-Public Use
  Company Number: GandW FILE C-10-034

PATIENT
  Sex: Female

DRUGS (1)
  1. LUBRICATING JELLY [Suspect]
     Indication: INADEQUATE LUBRICATION

REACTIONS (3)
  - PRODUCT QUALITY ISSUE [None]
  - VULVOVAGINAL BURNING SENSATION [None]
  - VULVOVAGINAL DISCOMFORT [None]
